FAERS Safety Report 22095838 (Version 1)
Quarter: 2023Q1

REPORT INFORMATION
  Report Type: Report from Study
  Country: US (occurrence: US)
  Receive Date: 20230314
  Receipt Date: 20230314
  Transmission Date: 20230418
  Serious: Yes (Other)
  Sender: FDA-Public Use
  Company Number: US-ABBVIE-4338352

PATIENT
  Age: 41 Year
  Sex: Female

DRUGS (3)
  1. SKYRIZI [Suspect]
     Active Substance: RISANKIZUMAB-RZAA
     Indication: Crohn^s disease
     Dosage: 350 MG/2.4 ML
     Route: 058
     Dates: start: 20221201
  2. PROBIOTICS NOS [Concomitant]
     Active Substance: PROBIOTICS NOS
     Indication: Product used for unknown indication
     Dosage: 10B CELL CAPSULE
  3. TRAMADOL HCL [Concomitant]
     Active Substance: TRAMADOL HYDROCHLORIDE
     Indication: Product used for unknown indication
     Route: 048

REACTIONS (3)
  - Surgery [Unknown]
  - Adverse event [Unknown]
  - Crohn^s disease [Recovering/Resolving]

NARRATIVE: CASE EVENT DATE: 20230225
